FAERS Safety Report 7290289-6 (Version None)
Quarter: 2011Q1

REPORT INFORMATION
  Report Type: 
  Country: None (occurrence: None)
  Receive Date: 20110202
  Receipt Date: 20110128
  Transmission Date: 20110831
  Serious: Yes (Other)
  Sender: FDA-Public Use
  Company Number: MYVW-PR-1101S-0018

PATIENT
  Age: 68 Year
  Sex: Female

DRUGS (5)
  1. ACTONEL [Concomitant]
  2. TECHNETIUM (TC99M) GENERATOR (MANF. UNKNOWN) (SODIUM PERTECHNETATE TC9 [Concomitant]
  3. VITAMIN B [Concomitant]
  4. MYOVIEW [Suspect]
     Indication: PRODUCT USED FOR UNKNOWN INDICATION
     Dosage: (1128.5 MBQ, SINGLE DOSE, I.V.) (370 MBQ, SINGLE DOSE, I.V.)
     Route: 042
     Dates: start: 20101026, end: 20101026
  5. MYOVIEW [Suspect]
     Indication: PRODUCT USED FOR UNKNOWN INDICATION
     Dosage: (1128.5 MBQ, SINGLE DOSE, I.V.) (370 MBQ, SINGLE DOSE, I.V.)
     Route: 042
     Dates: start: 20101026, end: 20101026

REACTIONS (1)
  - PEMPHIGOID [None]
